FAERS Safety Report 13838133 (Version 1)
Quarter: 2017Q3

REPORT INFORMATION
  Report Type: Spontaneous
  Country: IT (occurrence: IT)
  Receive Date: 20170807
  Receipt Date: 20170807
  Transmission Date: 20171127
  Serious: Yes (Death, Other)
  Sender: FDA-Public Use
  Company Number: IT-JAZZ-2017-IT-009746

PATIENT
  Age: 4 Year
  Sex: Female

DRUGS (5)
  1. CIDOFOVIR. [Suspect]
     Active Substance: CIDOFOVIR
     Indication: CYSTITIS HAEMORRHAGIC
  2. VORICONAZOLE. [Suspect]
     Active Substance: VORICONAZOLE
     Dosage: 16 MG/KG, QD
  3. DEFITELIO [Suspect]
     Active Substance: DEFIBROTIDE SODIUM
     Indication: MICROANGIOPATHY
  4. CIPROFLOXACIN. [Suspect]
     Active Substance: CIPROFLOXACIN
     Indication: SEPSIS
  5. VORICONAZOLE. [Suspect]
     Active Substance: VORICONAZOLE
     Indication: ASPERGILLUS INFECTION
     Dosage: 18MG/KG, QD, FIRST DAYS

REACTIONS (3)
  - Product use in unapproved indication [Unknown]
  - Adenovirus infection [Fatal]
  - Toxic epidermal necrolysis [Unknown]
